FAERS Safety Report 8841973 (Version 2)
Quarter: 2012Q4

REPORT INFORMATION
  Report Type: 
  Country: KR (occurrence: KR)
  Receive Date: 20121016
  Receipt Date: 20121108
  Transmission Date: 20130627
  Serious: Yes (Other)
  Sender: FDA-Public Use
  Company Number: KR-UCBSA-068609

PATIENT
  Sex: Male

DRUGS (3)
  1. KEPPRA [Suspect]
     Indication: EPILEPSY
     Route: 048
     Dates: start: 20120511
  2. KEPPRA [Suspect]
     Indication: EPILEPSY
     Route: 048
     Dates: start: 20120427, end: 20120510
  3. VANCOMYCIN [Suspect]
     Indication: MENINGITIS
     Route: 042

REACTIONS (2)
  - Meningitis [Unknown]
  - Neutropenia [Not Recovered/Not Resolved]
